FAERS Safety Report 25919315 (Version 1)
Quarter: 2025Q4

REPORT INFORMATION
  Report Type: Spontaneous
  Country: EU (occurrence: EU)
  Receive Date: 20251014
  Receipt Date: 20251014
  Transmission Date: 20260118
  Serious: Yes (Life-Threatening)
  Sender: FRESENIUS KABI
  Company Number: None

PATIENT
  Age: 31 Year
  Sex: Male
  Weight: 85 kg

DRUGS (4)
  1. PROPOFOL [Suspect]
     Active Substance: PROPOFOL
     Indication: Sedation
     Dosage: 4MG/KG/HOUR?DOSAGE FORM: EMULSION FOR INJECTION
     Dates: start: 20240406, end: 20240410
  2. NORADRENALINE Solution for infusion 0,2MG/ML / Brand name not specifie [Concomitant]
     Indication: Product used for unknown indication
     Dosage: INFUSION FLUID, 0.2 MG/ML (MILLIGRAM PER MILLILITRE)
  3. REMIFENTANIL Solution for infusion 0,02MG/ML / Brand name not specifie [Concomitant]
     Indication: Product used for unknown indication
     Dosage: INFUSION FLUID, 0.2 MG/ML (MILLIGRAM PER MILLILITRE)
  4. INSULIN ASPART Solution for infusion 1E/ML / Brand name not specified [Concomitant]
     Indication: Product used for unknown indication
     Dosage: SOLUTION FOR INFUSION, 1UNIT/ML (UNITS PER ML)

REACTIONS (3)
  - Metabolic acidosis [Recovered/Resolved]
  - Blood creatine phosphokinase increased [Recovered/Resolved]
  - Renal impairment [Recovered/Resolved]
